FAERS Safety Report 4591516-6 (Version None)
Quarter: 2005Q1

REPORT INFORMATION
  Report Type: 
  Country: None (occurrence: None)
  Receive Date: 20050223
  Receipt Date: 20050223
  Transmission Date: 20050727
  Serious: Yes (Hospitalization)
  Sender: FDA-Public Use
  Company Number: None

PATIENT
  Sex: Male

DRUGS (13)
  1. HEPARIN [Suspect]
     Indication: ANTICOAGULANT THERAPY
     Dosage: TITRATION   PROTOCOL     INTRAVENOU
     Route: 042
  2. CLOPIDOGREL [Concomitant]
  3. COLCHICINE [Concomitant]
  4. DOCUSATE [Concomitant]
  5. HYDRALAZINE [Concomitant]
  6. LACTULOSE [Concomitant]
  7. LIDOCAINE [Concomitant]
  8. MINOXIDIL [Concomitant]
  9. NAPROXEN [Concomitant]
  10. NEPHROCAPS [Concomitant]
  11. OXYCODONE AND ACETAMINOPHEN [Concomitant]
  12. SEVALEMER [Concomitant]
  13. SODIUM BICARBONATE [Concomitant]

REACTIONS (2)
  - HAEMATOCRIT DECREASED [None]
  - HAEMOGLOBIN DECREASED [None]
